FAERS Safety Report 17005528 (Version 1)
Quarter: 2019Q4

REPORT INFORMATION
  Report Type: Not Available
  Country: CA (occurrence: CA)
  Receive Date: 20191107
  Receipt Date: 20191107
  Transmission Date: 20200122
  Serious: Yes (Other)
  Sender: FDA-Public Use
  Company Number: CA-CELGENEUS-CAN-20191011699

PATIENT
  Age: 69 Year
  Sex: Male
  Weight: 50 kg

DRUGS (17)
  1. REVLIMID [Suspect]
     Active Substance: LENALIDOMIDE
     Indication: PLASMA CELL MYELOMA
     Route: 048
  2. EXJADE [Suspect]
     Active Substance: DEFERASIROX
     Dosage: 1750 MILLIGRAM
     Route: 048
  3. EXJADE [Suspect]
     Active Substance: DEFERASIROX
     Dosage: 1750 MILLIGRAM
     Route: 048
  4. DABIGATRAN ETEXILATE MESILATE [Concomitant]
     Active Substance: DABIGATRAN ETEXILATE MESYLATE
     Indication: PRODUCT USED FOR UNKNOWN INDICATION
     Route: 065
  5. REVLIMID [Suspect]
     Active Substance: LENALIDOMIDE
     Indication: MYELODYSPLASTIC SYNDROME
     Route: 048
  6. EXJADE [Suspect]
     Active Substance: DEFERASIROX
     Indication: MYELODYSPLASTIC SYNDROME
     Dosage: 500 MILLIGRAM
     Route: 048
  7. EXJADE [Suspect]
     Active Substance: DEFERASIROX
     Dosage: 2500 MILLIGRAM
     Route: 048
  8. EXJADE [Suspect]
     Active Substance: DEFERASIROX
     Dosage: 1500 MILLIGRAM
     Route: 048
  9. TESTOSTERONE. [Concomitant]
     Active Substance: TESTOSTERONE
     Indication: PRODUCT USED FOR UNKNOWN INDICATION
     Route: 065
  10. DIGOXIN. [Concomitant]
     Active Substance: DIGOXIN
     Indication: PRODUCT USED FOR UNKNOWN INDICATION
     Route: 065
  11. EXJADE [Suspect]
     Active Substance: DEFERASIROX
     Dosage: 1500 MILLIGRAM
     Route: 048
  12. EXJADE [Suspect]
     Active Substance: DEFERASIROX
     Dosage: 2000 MILLIGRAM
     Route: 048
  13. EXJADE [Suspect]
     Active Substance: DEFERASIROX
     Dosage: 2000 MILLIGRAM
     Route: 048
  14. EXJADE [Suspect]
     Active Substance: DEFERASIROX
     Dosage: 1750 MILLIGRAM
     Route: 048
  15. EXJADE [Suspect]
     Active Substance: DEFERASIROX
     Dosage: 2000 MILLIGRAM
     Route: 048
  16. EXJADE [Suspect]
     Active Substance: DEFERASIROX
     Dosage: 1000 MILLIGRAM
     Route: 048
  17. EXJADE [Suspect]
     Active Substance: DEFERASIROX
     Dosage: 1000 MILLIGRAM
     Route: 048

REACTIONS (21)
  - Infection [Not Recovered/Not Resolved]
  - Neutrophil count decreased [Not Recovered/Not Resolved]
  - Extrasystoles [Not Recovered/Not Resolved]
  - Atrial flutter [Not Recovered/Not Resolved]
  - Atrial fibrillation [Not Recovered/Not Resolved]
  - Abdominal pain [Not Recovered/Not Resolved]
  - Pneumonia bacterial [Not Recovered/Not Resolved]
  - Gastrointestinal motility disorder [Not Recovered/Not Resolved]
  - Heart rate irregular [Not Recovered/Not Resolved]
  - Flatulence [Not Recovered/Not Resolved]
  - Tooth infection [Not Recovered/Not Resolved]
  - Abdominal discomfort [Not Recovered/Not Resolved]
  - Diarrhoea [Not Recovered/Not Resolved]
  - Serum ferritin increased [Not Recovered/Not Resolved]
  - Renal impairment [Not Recovered/Not Resolved]
  - Abdominal distension [Not Recovered/Not Resolved]
  - Heart rate increased [Not Recovered/Not Resolved]
  - Blood creatinine increased [Not Recovered/Not Resolved]
  - Red blood cell count decreased [Not Recovered/Not Resolved]
  - Arrhythmia [Not Recovered/Not Resolved]
  - Constipation [Not Recovered/Not Resolved]
